FAERS Safety Report 6691763-3 (Version None)
Quarter: 2010Q2

REPORT INFORMATION
  Report Type: 
  Country: None (occurrence: None)
  Receive Date: 20100422
  Receipt Date: 20090310
  Transmission Date: 20101027
  Serious: No
  Sender: FDA-Public Use
  Company Number: US-ASTRAZENECA-2009UW06337

PATIENT
  Age: 76 Year
  Sex: Female
  Weight: 67.1 kg

DRUGS (1)
  1. TOPROL-XL [Suspect]
     Route: 048

REACTIONS (2)
  - HERPES ZOSTER [None]
  - INFLUENZA [None]
